FAERS Safety Report 14373876 (Version 2)
Quarter: 2018Q1

REPORT INFORMATION
  Report Type: Report from Study
  Country: US (occurrence: US)
  Receive Date: 20180110
  Receipt Date: 20180209
  Transmission Date: 20180509
  Serious: Yes (Other)
  Sender: FDA-Public Use
  Company Number: US-ALEXION PHARMACEUTICALS INC.-A201800031

PATIENT
  Sex: Male

DRUGS (3)
  1. SOLIRIS [Suspect]
     Active Substance: ECULIZUMAB
     Indication: PAROXYSMAL NOCTURNAL HAEMOGLOBINURIA
     Dosage: UNKNOWN
     Route: 065
  2. SOLIRIS [Suspect]
     Active Substance: ECULIZUMAB
     Dosage: UNKNOWN
     Route: 065
  3. SOLIRIS [Suspect]
     Active Substance: ECULIZUMAB
     Dosage: 900 MG, QW
     Route: 065
     Dates: start: 20180201

REACTIONS (5)
  - Drug level changed [Unknown]
  - Total complement activity increased [Unknown]
  - Inappropriate schedule of drug administration [Unknown]
  - Blood lactate dehydrogenase abnormal [Unknown]
  - Haemolysis [Unknown]

NARRATIVE: CASE EVENT DATE: 20180102
